FAERS Safety Report 8322412-6 (Version None)
Quarter: 2012Q2

REPORT INFORMATION
  Report Type: 
  Country: None (occurrence: None)
  Receive Date: 20120430
  Receipt Date: 20120423
  Transmission Date: 20120825
  Serious: Yes (Death, Life-Threatening, Hospitalization, Other)
  Sender: FDA-Public Use
  Company Number: US-CELGENEUS-163-21880-12042605

PATIENT
  Sex: Male

DRUGS (11)
  1. POTASSIUM CHLORIDE [Concomitant]
     Route: 048
  2. METRONIDAZOLE [Concomitant]
     Dosage: 500 MILLIGRAM
     Route: 048
     Dates: start: 20120308
  3. LIDOCAINE/NYSTATIN/DIPHENHYDRAMINE [Concomitant]
     Route: 065
  4. ASPIRIN [Concomitant]
     Dosage: 81 MILLIGRAM
     Route: 048
  5. LEVOFLOXACIN [Concomitant]
     Dosage: 500 MILLIGRAM
     Route: 048
     Dates: start: 20120420
  6. REVLIMID [Suspect]
     Indication: MULTIPLE MYELOMA
     Dosage: 25 MILLIGRAM
     Route: 048
     Dates: start: 20111018, end: 20120410
  7. GABAPENTIN [Concomitant]
     Dosage: 100 MILLIGRAM
     Route: 048
  8. LEXAPRO [Concomitant]
     Dosage: 10 MILLIGRAM
     Route: 048
  9. HYDROCODONE BITARTRATE + ACETAMINOPHEN [Concomitant]
     Route: 065
  10. PREDNISONE TAB [Concomitant]
     Dosage: 5 MILLIGRAM
     Route: 048
     Dates: start: 20120313
  11. ATENOLOL [Concomitant]
     Dosage: 25 MILLIGRAM
     Route: 048
     Dates: start: 20120119

REACTIONS (2)
  - CEREBROVASCULAR ACCIDENT [None]
  - SEPSIS [None]
